FAERS Safety Report 15481573 (Version 4)
Quarter: 2020Q3

REPORT INFORMATION
  Report Type: Spontaneous
  Country: DE (occurrence: DE)
  Receive Date: 20181010
  Receipt Date: 20200813
  Transmission Date: 20201102
  Serious: Yes (Hospitalization)
  Sender: FDA-Public Use
  Company Number: DE-AUROBINDO-AUR-APL-2018-049266

PATIENT
  Age: 84 Year
  Sex: Male
  Weight: 66 kg

DRUGS (18)
  1. FLUVASTATIN [Concomitant]
     Active Substance: FLUVASTATIN SODIUM
     Indication: HYPERCHOLESTEROLAEMIA
     Dosage: 80 MILLIGRAM, DAILY
     Route: 065
  2. TOREMIFENE [Concomitant]
     Active Substance: TOREMIFENE
     Dosage: 30 MILLIGRAM
     Route: 065
     Dates: start: 20180608
  3. EXJADE [Suspect]
     Active Substance: DEFERASIROX
     Dosage: 360 MILLIGRAM (REINTRODUCTION AFTER INTERRUPTION; 11MG/KG BODYWEIGHT/DAY=2 TABLETS A 360MG)
     Route: 065
     Dates: start: 20180924, end: 20181012
  4. RAMIPRIL. [Concomitant]
     Active Substance: RAMIPRIL
     Indication: HYPERTENSION
     Dosage: 5 MILLIGRAM, DAILY
     Route: 065
  5. ALDACTONE [Concomitant]
     Active Substance: SPIRONOLACTONE
     Indication: HYPERTENSION
     Dosage: 50 MILLIGRAM, ONCE A DAY
     Route: 065
     Dates: start: 20180509, end: 20180607
  6. CLOPIDOGREL [Suspect]
     Active Substance: CLOPIDOGREL BISULFATE
     Indication: PULMONARY HYPERTENSION
     Dosage: 75 MILLIGRAM, DAILY
     Route: 065
  7. SPIRONOLACTONE. [Concomitant]
     Active Substance: SPIRONOLACTONE
     Indication: HYPERTENSION
     Dosage: 25 MILLIGRAM, ONCE A DAY
     Route: 065
     Dates: start: 20180608
  8. PRAVASTATIN. [Concomitant]
     Active Substance: PRAVASTATIN
     Indication: HYPERCHOLESTEROLAEMIA
     Dosage: 40 MILLIGRAM, ONCE A DAY
     Route: 065
     Dates: start: 20180608
  9. EXJADE [Suspect]
     Active Substance: DEFERASIROX
     Dosage: 360 MILLIGRAM, FOUR TIMES/DAY (22MG/KG BODYWEIGHT/DAY)
     Route: 065
     Dates: start: 20171211, end: 20171222
  10. EXJADE [Suspect]
     Active Substance: DEFERASIROX
     Dosage: 360 MILLIGRAM, TWO TIMES A DAY (720 MILLIGRAM, ONCE A DAY)  (11MG/KG BODYWEIGHT/DAY)
     Route: 065
     Dates: start: 20180122, end: 20180731
  11. ISMN [Concomitant]
     Active Substance: ISOSORBIDE MONONITRATE
     Indication: PROPHYLAXIS
     Dosage: 60 MILLIGRAM, DAILY
     Route: 065
  12. TOREMIFENE [Concomitant]
     Active Substance: TOREMIFENE
     Dosage: 20 MILLIGRAM
     Route: 065
     Dates: start: 20180507, end: 20180607
  13. EXJADE [Suspect]
     Active Substance: DEFERASIROX
     Indication: IRON OVERLOAD
     Dosage: 360 MILLIGRAM, TWO TIMES A DAY (720 MG, DAILY) (11MG/KG BODYWEIGHT/DAY)
     Route: 065
     Dates: start: 20171113, end: 20171210
  14. EXJADE [Suspect]
     Active Substance: DEFERASIROX
     Dosage: UNK
     Route: 065
     Dates: start: 20180801, end: 20180923
  15. TOREMIFENE [Concomitant]
     Active Substance: TOREMIFENE
     Indication: HYPERTENSION
     Dosage: 10 MILLIGRAM, DAILY
     Route: 065
     Dates: start: 20180506
  16. EXJADE [Suspect]
     Active Substance: DEFERASIROX
     Dosage: UNK
     Route: 065
     Dates: start: 20171223, end: 20180103
  17. EXJADE [Suspect]
     Active Substance: DEFERASIROX
     Dosage: 360 MILLIGRAM, ONCE A DAY (6MG/KG BODYWEIGHT/DAY)
     Route: 065
     Dates: start: 20180104, end: 20180121
  18. BISOPROLOL [Concomitant]
     Active Substance: BISOPROLOL
     Indication: HYPERTENSION
     Dosage: 5 MILLIGRAM, DAILY
     Route: 065

REACTIONS (6)
  - Diarrhoea [Recovered/Resolved]
  - Decreased appetite [Recovered/Resolved]
  - Oedema peripheral [Recovered/Resolved]
  - Nausea [Recovered/Resolved]
  - Haematuria [Recovered/Resolved]
  - Dyspnoea [Recovering/Resolving]

NARRATIVE: CASE EVENT DATE: 20171212
